FAERS Safety Report 16181239 (Version 2)
Quarter: 2019Q2

REPORT INFORMATION
  Report Type: Spontaneous
  Country: US (occurrence: US)
  Receive Date: 20190410
  Receipt Date: 20190418
  Transmission Date: 20190711
  Serious: Yes (Hospitalization, Other)
  Sender: FDA-Public Use
  Company Number: US-009507513-1904USA004186

PATIENT
  Sex: Male

DRUGS (1)
  1. PROVENTIL [Suspect]
     Active Substance: ALBUTEROL

REACTIONS (6)
  - Poor quality product administered [Unknown]
  - Product lot number issue [Unknown]
  - Pneumonia [Unknown]
  - Physical product label issue [Unknown]
  - Suspected counterfeit product [Unknown]
  - Product quality issue [Unknown]
